FAERS Safety Report 16646428 (Version 7)
Quarter: 2020Q4

REPORT INFORMATION
  Report Type: Spontaneous
  Country: US (occurrence: US)
  Receive Date: 20190730
  Receipt Date: 20201228
  Transmission Date: 20210113
  Serious: Yes (Other)
  Sender: FDA-Public Use
  Company Number: US-PFIZER INC-2016565892

PATIENT
  Age: 15 Year
  Sex: Male
  Weight: 43 kg

DRUGS (4)
  1. BENEFIX [Suspect]
     Active Substance: COAGULATION FACTOR IX RECOMBINANT HUMAN\ISOPROPYL ALCOHOL
     Indication: FACTOR IX DEFICIENCY
     Dosage: 4300 IU, AS NEEDED (4300 UNITS (+/-5%)= 100U/KG= 100% DOSE OF BLEEDS ON DEMAND)
  2. BENEFIX [Suspect]
     Active Substance: COAGULATION FACTOR IX RECOMBINANT HUMAN\ISOPROPYL ALCOHOL
     Dosage: 6400 IU, AS NEEDED (DOSING AT 64 KG. PLEASE INFUSE BENEFIX 6400 UNITS (+5%) = 100 U/KG ON DEMAND FOR
  3. BENEFIX [Suspect]
     Active Substance: COAGULATION FACTOR IX RECOMBINANT HUMAN\ISOPROPYL ALCOHOL
     Dosage: 6200 IU, DOSING WEIGHT IS 62 KGS. INFUSE BENEFIX 6200 UNITS (+5%) = 100 UNITS/KG, EVERY OTHER
  4. BENEFIX [Suspect]
     Active Substance: COAGULATION FACTOR IX RECOMBINANT HUMAN\ISOPROPYL ALCOHOL
     Dosage: 6400 IU, 1X/DAY (DOSING AT 64 KG. PLEASE INFUSE BENEFIX 6400 UNITS (+5%) = 100 U/KG ONCE DAILY UNTIL

REACTIONS (2)
  - Haemorrhage [Unknown]
  - Pain in extremity [Unknown]
